FAERS Safety Report 12012753 (Version 1)
Quarter: 2016Q1

REPORT INFORMATION
  Report Type: Spontaneous
  Country: US (occurrence: US)
  Receive Date: 20160205
  Receipt Date: 20160205
  Transmission Date: 20160526
  Serious: Yes (Hospitalization, Other)
  Sender: FDA-Public Use
  Company Number: US-BAYER-2016-017892

PATIENT
  Age: 68 Year
  Sex: Female

DRUGS (3)
  1. BAYER ASPIRIN QUICK RELEASE CRYSTALS [Suspect]
     Active Substance: ASPIRIN
     Indication: MYOCARDIAL INFARCTION
     Dosage: AS NEEDED
  2. BAYER GENUINE ASPIRIN [Suspect]
     Active Substance: ASPIRIN
     Indication: ISCHAEMIC HEART DISEASE PROPHYLAXIS
     Dosage: 1 DF, BID
     Route: 048
     Dates: start: 2008, end: 2008
  3. BAYER LOW DOSE [Concomitant]
     Active Substance: ASPIRIN
     Dosage: 1 DF, QD
     Route: 048

REACTIONS (2)
  - Myocardial infarction [Recovered/Resolved]
  - Product use issue [None]

NARRATIVE: CASE EVENT DATE: 2008
